FAERS Safety Report 4753511-3 (Version None)
Quarter: 2005Q3

REPORT INFORMATION
  Report Type: 
  Country: None (occurrence: None)
  Receive Date: 20050824
  Receipt Date: 20050815
  Transmission Date: 20060218
  Serious: Yes (Hospitalization)
  Sender: FDA-Public Use
  Company Number: 216893

PATIENT
  Age: 54 Year
  Sex: Female

DRUGS (2)
  1. EFALIZUMAB (EFALIZUMAB) PWDR + SOLVENT, INJECTION SOLN, 125MG [Suspect]
     Indication: PSORIASIS
     Dosage: 1 MG/KG, 1/WEEK,
     Dates: start: 20050401, end: 20050804
  2. NAPROSYN [Concomitant]

REACTIONS (4)
  - DIZZINESS [None]
  - LOSS OF CONSCIOUSNESS [None]
  - PHARYNGOLARYNGEAL PAIN [None]
  - SYNCOPE VASOVAGAL [None]
